FAERS Safety Report 14367310 (Version 1)
Quarter: 2018Q1

REPORT INFORMATION
  Report Type: Spontaneous
  Country: US (occurrence: US)
  Receive Date: 20180108
  Receipt Date: 20180108
  Transmission Date: 20180509
  Serious: No
  Sender: FDA-Public Use
  Company Number: None

PATIENT
  Age: 5 Month
  Sex: Male

DRUGS (1)
  1. HEMANGEOL [Suspect]
     Active Substance: PROPRANOLOL HYDROCHLORIDE
     Indication: INFANTILE HAEMANGIOMA
     Route: 048
     Dates: start: 20171220, end: 20171220

REACTIONS (3)
  - Diarrhoea [None]
  - Vomiting [None]
  - Crying [None]

NARRATIVE: CASE EVENT DATE: 20171220
